FAERS Safety Report 8563034-1 (Version None)
Quarter: 2012Q3

REPORT INFORMATION
  Report Type: 
  Country: None (occurrence: None)
  Receive Date: 20120802
  Receipt Date: 20120723
  Transmission Date: 20120928
  Serious: No
  Sender: FDA-Public Use
  Company Number: US-AMGEN-USASP2012045892

PATIENT
  Age: 55 Year
  Sex: Male

DRUGS (1)
  1. ENBREL [Suspect]
     Indication: RHEUMATOID ARTHRITIS
     Dosage: 50 MG, QWK
     Dates: start: 20110825

REACTIONS (4)
  - PERIARTHRITIS [None]
  - THERAPEUTIC RESPONSE DECREASED [None]
  - GAIT DISTURBANCE [None]
  - DIARRHOEA [None]
